FAERS Safety Report 14719188 (Version 4)
Quarter: 2020Q3

REPORT INFORMATION
  Report Type: Other
  Country: CA (occurrence: CA)
  Receive Date: 20180405
  Receipt Date: 20200922
  Transmission Date: 20201102
  Serious: Yes (Hospitalization, Other)
  Sender: FDA-Public Use
  Company Number: CA-ROCHE-2099847

PATIENT
  Age: 55 Year
  Sex: Male

DRUGS (3)
  1. XOLAIR [Suspect]
     Active Substance: OMALIZUMAB
     Route: 058
     Dates: start: 201711, end: 201711
  2. XOLAIR [Suspect]
     Active Substance: OMALIZUMAB
     Indication: ASTHMA
     Route: 058
     Dates: start: 20121204
  3. XOLAIR [Suspect]
     Active Substance: OMALIZUMAB
     Route: 058
     Dates: start: 20200310

REACTIONS (8)
  - Road traffic accident [Unknown]
  - Lung neoplasm malignant [Unknown]
  - Small intestinal perforation [Unknown]
  - Dyspnoea [Unknown]
  - Product dose omission issue [Unknown]
  - Diaphragmatic paralysis [Unknown]
  - Oesophageal rupture [Unknown]
  - Asthma [Unknown]

NARRATIVE: CASE EVENT DATE: 2017
